FAERS Safety Report 26156079 (Version 1)
Quarter: 2025Q4

REPORT INFORMATION
  Report Type: Spontaneous
  Country: CA (occurrence: CA)
  Receive Date: 20251215
  Receipt Date: 20251215
  Transmission Date: 20260117
  Serious: Yes (Other)
  Sender: ROCHE
  Company Number: CA-ROCHE-10000451168

PATIENT
  Age: 50 Year
  Sex: Female

DRUGS (10)
  1. MYCOPHENOLATE MOFETIL [Suspect]
     Active Substance: MYCOPHENOLATE MOFETIL
     Indication: Lichen planus
  2. MYCOPHENOLATE MOFETIL [Suspect]
     Active Substance: MYCOPHENOLATE MOFETIL
     Indication: Vulval disorder
  3. ACITRETIN [Suspect]
     Active Substance: ACITRETIN
     Indication: Lichen planus
     Route: 048
  4. ACITRETIN [Suspect]
     Active Substance: ACITRETIN
     Indication: Vulval disorder
  5. APREMILAST [Suspect]
     Active Substance: APREMILAST
     Indication: Lichen planus
     Route: 048
  6. APREMILAST [Suspect]
     Active Substance: APREMILAST
     Indication: Vulval disorder
  7. CYCLOSPORINE [Suspect]
     Active Substance: CYCLOSPORINE
     Indication: Lichen planus
  8. CYCLOSPORINE [Suspect]
     Active Substance: CYCLOSPORINE
  9. CLOBETASOL PROPIONATE [Concomitant]
     Active Substance: CLOBETASOL PROPIONATE
     Indication: Lichen planus
  10. TACROLIMUS [Concomitant]
     Active Substance: TACROLIMUS
     Indication: Lichen planus

REACTIONS (2)
  - Condition aggravated [Recovering/Resolving]
  - Drug ineffective [Unknown]
